FAERS Safety Report 17316508 (Version 2)
Quarter: 2020Q1

REPORT INFORMATION
  Report Type: Spontaneous
  Country: US (occurrence: US)
  Receive Date: 20200124
  Receipt Date: 20200130
  Transmission Date: 20200409
  Serious: Yes (Other)
  Sender: FDA-Public Use
  Company Number: US-HTU-2020US020134

PATIENT
  Sex: Female

DRUGS (1)
  1. VALCHLOR [Suspect]
     Active Substance: MECHLORETHAMINE
     Indication: CUTANEOUS T-CELL LYMPHOMA
     Dosage: UNK, SINGLE
     Route: 061

REACTIONS (4)
  - Leukaemia [Unknown]
  - Condition aggravated [Unknown]
  - Drug hypersensitivity [Recovered/Resolved]
  - Application site rash [Recovered/Resolved]
